FAERS Safety Report 9014461 (Version 1)
Quarter: 2013Q1

REPORT INFORMATION
  Report Type: Spontaneous
  Country: US (occurrence: US)
  Receive Date: 20130115
  Receipt Date: 20130115
  Transmission Date: 20140127
  Serious: Yes (Other)
  Sender: FDA-Public Use
  Company Number: US-GLAXOSMITHKLINE-A1008012A

PATIENT
  Age: 4 Year
  Sex: Male

DRUGS (4)
  1. VENTOLIN HFA [Suspect]
     Indication: COUGH
     Dosage: 2PUFF FOUR TIMES PER DAY
     Route: 055
     Dates: start: 20130109, end: 20130109
  2. BENADRYL [Concomitant]
  3. ADVIL [Concomitant]
  4. TYLENOL [Concomitant]

REACTIONS (7)
  - Depressed level of consciousness [Recovering/Resolving]
  - Flushing [Recovering/Resolving]
  - Thermal burn [Recovering/Resolving]
  - Somnolence [Recovering/Resolving]
  - Vomiting [Recovering/Resolving]
  - Nasal congestion [Recovering/Resolving]
  - Pyrexia [Recovering/Resolving]
